FAERS Safety Report 6082537-5 (Version None)
Quarter: 2009Q1

REPORT INFORMATION
  Report Type: 
  Country: None (occurrence: None)
  Receive Date: 20090204
  Receipt Date: 20071108
  Transmission Date: 20090719
  Serious: No
  Sender: FDA-Public Use
  Company Number: 267149

PATIENT
  Age: 72 Year
  Sex: Male
  Weight: 86.2 kg

DRUGS (1)
  1. NOVOLOG MIX 70/30 [Suspect]
     Indication: INSULIN-REQUIRING TYPE 2 DIABETES MELLITUS
     Dosage: SLIDING SCALE, QID, SUBCUTANEOUS
     Route: 058
     Dates: start: 20070823, end: 20070904

REACTIONS (1)
  - HYPERSENSITIVITY [None]
